FAERS Safety Report 21675764 (Version 1)
Quarter: 2022Q4

REPORT INFORMATION
  Report Type: Spontaneous
  Country: US (occurrence: US)
  Receive Date: 20221202
  Receipt Date: 20221202
  Transmission Date: 20230112
  Serious: No
  Sender: FDA-Public Use
  Company Number: US-BEH-2022152613

PATIENT
  Sex: Male

DRUGS (3)
  1. HIZENTRA [Suspect]
     Active Substance: HUMAN IMMUNOGLOBULIN G
     Indication: Genitourinary symptom
     Dosage: 20 GRAM EVERY 14 DAYS
     Route: 058
     Dates: start: 202201
  2. HIZENTRA [Suspect]
     Active Substance: HUMAN IMMUNOGLOBULIN G
     Indication: Bell^s palsy
     Dosage: 8 GRAM EVERY 14 DAYS
     Route: 058
     Dates: start: 202201
  3. HIZENTRA [Suspect]
     Active Substance: HUMAN IMMUNOGLOBULIN G
     Indication: Optic neuritis

REACTIONS (3)
  - Respiratory syncytial virus infection [Unknown]
  - No adverse event [Unknown]
  - Off label use [Unknown]
